FAERS Safety Report 7093455-8 (Version None)
Quarter: 2010Q4

REPORT INFORMATION
  Report Type: 
  Country: None (occurrence: None)
  Receive Date: 20101110
  Receipt Date: 20101103
  Transmission Date: 20110411
  Serious: Yes (Life-Threatening, Hospitalization, Other)
  Sender: FDA-Public Use
  Company Number: PHHY2010US59150

PATIENT
  Sex: Male
  Weight: 77.551 kg

DRUGS (17)
  1. FORADIL [Suspect]
     Indication: HYPERSENSITIVITY
     Dosage: 12 UG, BID
     Dates: start: 20080609, end: 20080610
  2. FORADIL [Suspect]
     Indication: ASTHMA
  3. PREDNISONE [Concomitant]
     Route: 048
  4. SEREVENT [Concomitant]
  5. NASONEX [Concomitant]
     Route: 048
  6. NASACORT [Concomitant]
     Route: 048
  7. ASMANEX TWISTHALER [Concomitant]
     Indication: ASTHMA
     Dosage: UNK
  8. ASMANEX TWISTHALER [Concomitant]
     Indication: CHEST DISCOMFORT
  9. ALBUTEROL [Concomitant]
     Indication: ASTHMA
     Dosage: UNK
  10. XYZAL [Concomitant]
     Indication: HYPERSENSITIVITY
     Dosage: UNK
     Route: 048
  11. MUCINEX [Concomitant]
  12. PULMICORT [Concomitant]
  13. CLONIDINE [Concomitant]
     Route: 062
  14. DIOVAN [Concomitant]
  15. ACIPHEX [Concomitant]
  16. CHLORTHA [Concomitant]
  17. FLOVENT [Concomitant]
     Dosage: UNK
     Dates: start: 20050101

REACTIONS (7)
  - CARDIAC INFECTION [None]
  - CHEST DISCOMFORT [None]
  - ENDOCARDITIS [None]
  - EPISTAXIS [None]
  - RESPIRATORY TRACT IRRITATION [None]
  - STAPHYLOCOCCAL INFECTION [None]
  - THROAT IRRITATION [None]
